FAERS Safety Report 5031083-6 (Version None)
Quarter: 2006Q2

REPORT INFORMATION
  Report Type: 
  Country: None (occurrence: None)
  Receive Date: 20060504
  Receipt Date: 20051208
  Transmission Date: 20061013
  Serious: No
  Sender: FDA-Public Use
  Company Number: 200512916BWH

PATIENT
  Sex: Male

DRUGS (1)
  1. LEVITRA [Suspect]
     Indication: ERECTILE DYSFUNCTION
     Dosage: SEE IMAGE
     Route: 048
     Dates: start: 20040101

REACTIONS (1)
  - ERECTILE DYSFUNCTION [None]
